FAERS Safety Report 4914611-8 (Version None)
Quarter: 2006Q1

REPORT INFORMATION
  Report Type: 
  Country: None (occurrence: None)
  Receive Date: 20060216
  Receipt Date: 20051104
  Transmission Date: 20060701
  Serious: Yes (Hospitalization, Other)
  Sender: FDA-Public Use
  Company Number: US-MERCK-0511USA01185

PATIENT
  Age: 42 Year
  Sex: Female
  Weight: 86 kg

DRUGS (33)
  1. METOCLOPRAMIDE [Concomitant]
     Indication: GASTROOESOPHAGEAL REFLUX DISEASE
     Route: 065
  2. ZAROXOLYN [Concomitant]
     Indication: HYPERTENSION
     Route: 065
  3. SINGULAIR [Concomitant]
     Indication: HYPERSENSITIVITY
     Route: 048
  4. PULMICORT [Concomitant]
     Indication: ASTHMA
     Route: 065
  5. ALLEGRA [Concomitant]
     Indication: HYPERSENSITIVITY
     Route: 065
  6. PROZAC [Concomitant]
     Indication: NEURALGIA
     Route: 065
  7. PROPOXYPHENE HYDROCHLORIDE [Concomitant]
     Indication: PAIN
     Route: 065
  8. DIPHENHYDRAMINE HYDROCHLORIDE [Concomitant]
     Indication: NAUSEA
     Route: 065
  9. ACCUPRIL [Concomitant]
     Indication: HYPERTENSION
     Route: 065
  10. POTASSIUM CHLORIDE [Concomitant]
     Indication: HYPOKALAEMIA
     Route: 065
  11. COMBIVENT [Concomitant]
     Indication: ASTHMA
     Route: 065
  12. LEVAQUIN [Concomitant]
     Indication: BACTERIAL INFECTION
     Route: 065
  13. AUGMENTIN '125' [Concomitant]
     Indication: BACTERIAL INFECTION
     Route: 065
  14. ALBUTEROL [Concomitant]
     Indication: ASTHMA
     Route: 065
  15. VIOXX [Suspect]
     Indication: RHEUMATOID ARTHRITIS
     Route: 048
     Dates: start: 19991001, end: 20020808
  16. DIAZEPAM [Concomitant]
     Indication: ANXIETY
     Route: 065
  17. PREMARIN [Concomitant]
     Indication: HORMONE LEVEL ABNORMAL
     Route: 065
  18. HYDROCODONE BITARTRATE [Concomitant]
     Indication: PAIN
     Route: 065
  19. DOXYCYCLINE [Concomitant]
     Indication: BACTERIAL INFECTION
     Route: 065
  20. [THERAPY UNSPECIFIED] [Concomitant]
     Indication: NASAL CONGESTION
     Route: 065
  21. ADALAT [Concomitant]
     Indication: HYPERTENSION
     Route: 065
  22. AMOXICILLIN [Concomitant]
     Indication: BACTERIAL INFECTION
     Route: 065
  23. NORVASC [Concomitant]
     Indication: CHEST PAIN
     Route: 065
  24. LASIX [Concomitant]
     Indication: OEDEMA
     Route: 065
  25. PAXIL [Concomitant]
     Indication: DEPRESSION
     Route: 065
  26. CIMETIDINE [Concomitant]
     Indication: DYSPEPSIA
     Route: 065
  27. K-DUR 10 [Concomitant]
     Indication: BLOOD POTASSIUM DECREASED
     Route: 065
  28. ZITHROMAX [Concomitant]
     Indication: BACTERIAL INFECTION
     Route: 065
  29. ASPIRIN [Concomitant]
     Indication: PAIN
     Route: 065
     Dates: start: 19970101
  30. PRILOSEC [Concomitant]
     Indication: DYSPEPSIA
     Route: 065
  31. LIPITOR [Concomitant]
     Indication: BLOOD CHOLESTEROL INCREASED
     Route: 065
  32. SPIRONOLACTONE [Concomitant]
     Indication: HYPERTENSION
     Route: 065
  33. PROTONIX [Concomitant]
     Indication: DYSPEPSIA
     Route: 065

REACTIONS (16)
  - ANEURYSM [None]
  - ARRHYTHMIA [None]
  - CARDIAC VALVE DISEASE [None]
  - CAROTID ARTERY STENOSIS [None]
  - CEREBROVASCULAR ACCIDENT [None]
  - CHEST PAIN [None]
  - CHRONIC FATIGUE SYNDROME [None]
  - CHRONIC OBSTRUCTIVE PULMONARY DISEASE [None]
  - DYSPEPSIA [None]
  - GALLBLADDER DISORDER [None]
  - HERNIA [None]
  - MYOCARDIAL INFARCTION [None]
  - OESOPHAGEAL DISORDER [None]
  - SLEEP APNOEA SYNDROME [None]
  - SWELLING [None]
  - TRANSIENT ISCHAEMIC ATTACK [None]
